FAERS Safety Report 8315674-2 (Version None)
Quarter: 2012Q2

REPORT INFORMATION
  Report Type: 
  Country: None (occurrence: None)
  Receive Date: 20120426
  Receipt Date: 20120418
  Transmission Date: 20120825
  Serious: Yes (Other)
  Sender: FDA-Public Use
  Company Number: US-ABBOTT-12P-163-0926751-00

PATIENT
  Sex: Female
  Weight: 81.72 kg

DRUGS (6)
  1. THYROID MEDICATION [Concomitant]
     Indication: PRODUCT USED FOR UNKNOWN INDICATION
  2. CLOZAPINE [Concomitant]
     Indication: ANXIETY
  3. LEVOXL [Concomitant]
     Indication: PRODUCT USED FOR UNKNOWN INDICATION
  4. PAXIL [Concomitant]
     Indication: PRODUCT USED FOR UNKNOWN INDICATION
  5. ASPIRIN [Concomitant]
     Indication: PRODUCT USED FOR UNKNOWN INDICATION
  6. NIASPAN [Suspect]
     Indication: BLOOD TRIGLYCERIDES INCREASED

REACTIONS (6)
  - FLUSHING [None]
  - JOINT SWELLING [None]
  - IMPAIRED HEALING [None]
  - MENISCUS LESION [None]
  - JOINT LOCK [None]
  - ARTHRALGIA [None]
